FAERS Safety Report 5945892-X (Version None)
Quarter: 2008Q4

REPORT INFORMATION
  Report Type: 
  Country: None (occurrence: None)
  Receive Date: 20081110
  Receipt Date: 20081105
  Transmission Date: 20090506
  Serious: Yes (Death)
  Sender: FDA-Public Use
  Company Number: DE-JNJFOC-20081101291

PATIENT
  Age: 79 Year
  Sex: Female

DRUGS (2)
  1. REOPRO [Suspect]
     Indication: CARDIOGENIC SHOCK
  2. REOPRO [Suspect]
     Indication: MYOCARDIAL INFARCTION

REACTIONS (1)
  - CARDIOGENIC SHOCK [None]
